FAERS Safety Report 8765173 (Version 1)
Quarter: 2012Q4

REPORT INFORMATION
  Report Type: Report from Study
  Country: JP (occurrence: JP)
  Receive Date: 20120903
  Receipt Date: 20120903
  Transmission Date: 20130627
  Serious: Yes (Hospitalization, Other)
  Sender: FDA-Public Use
  Company Number: JP-009507513-2012SP013420

PATIENT

DRUGS (15)
  1. RIBAVIRIN [Suspect]
     Indication: HEPATITIS C
     Dosage: 600 mg, qd
     Route: 048
     Dates: start: 20120221, end: 20120301
  2. RIBAVIRIN [Suspect]
     Dosage: 400 mg, QD
     Route: 048
     Dates: start: 20120302
  3. PEG-INTRON [Suspect]
     Indication: HEPATITIS C
     Dosage: 80 ?g, QW
     Route: 058
     Dates: start: 20120221
  4. PEG-INTRON [Suspect]
     Dosage: 1.3 Microgram per kilogram, UNK
     Route: 058
     Dates: end: 20120410
  5. PEG-INTRON [Suspect]
     Dosage: 0.94 Microgram per kilogram, UNK
     Route: 058
     Dates: start: 20120417
  6. TELAVIC [Suspect]
     Indication: HEPATITIS C
     Dosage: 750 mg, tid
     Route: 048
     Dates: start: 20120221, end: 20120229
  7. TELAVIC [Suspect]
     Dosage: 1500 mg, QD
     Route: 048
     Dates: start: 20120301
  8. FAMOSTAGINE [Concomitant]
     Indication: GASTRITIS EROSIVE
     Dosage: UPDATE: 03APR2012, FORMULATION :POR
     Route: 048
     Dates: start: 20120207
  9. BLOPRESS [Concomitant]
     Indication: HYPERTENSION
     Dosage: UPDATE: 03APR2012,  FORMULATION :POR
     Route: 048
     Dates: start: 20120221
  10. SELTEPNON [Concomitant]
     Indication: PROPHYLAXIS
     Dosage: UPDATE: 03APR2012,  FORMULATION :POR
     Route: 048
     Dates: start: 20120221
  11. EPINASTINE HYDROCHLORIDE [Concomitant]
     Indication: PROPHYLAXIS
     Dosage: UPDATE: 03APR2012, TRADE NAME: UNKNOWN,  FORMULATION :POR
     Route: 048
     Dates: start: 20120221
  12. GASMOTIN [Concomitant]
     Indication: PROPHYLAXIS
     Dosage: UPDATE: 03APR2012, TRADE NAME: UNKNOWN,  FORMULATION :POR
     Route: 048
     Dates: start: 20120221
  13. FAMOSTAGINE [Concomitant]
     Indication: PROPHYLAXIS
     Dosage: 20 mg, qd
     Route: 048
  14. ALEROFF [Concomitant]
     Indication: PROPHYLAXIS
     Dosage: 20 mg, qd
     Route: 048
     Dates: start: 20120327
  15. PREDONINE [Concomitant]
     Indication: PROPHYLAXIS
     Dosage: 5 mg, UNK
     Dates: end: 20120409

REACTIONS (3)
  - Drug eruption [Unknown]
  - Anaemia [Recovered/Resolved]
  - Vomiting [Recovered/Resolved]
